FAERS Safety Report 22063147 (Version 1)
Quarter: 2023Q1

REPORT INFORMATION
  Report Type: Spontaneous
  Country: IR (occurrence: IR)
  Receive Date: 20230306
  Receipt Date: 20230306
  Transmission Date: 20230417
  Serious: Yes (Hospitalization, Other)
  Sender: FDA-Public Use
  Company Number: IR-STRIDES ARCOLAB LIMITED-2023SP000247

PATIENT
  Age: 37 Year
  Sex: Male

DRUGS (6)
  1. GABAPENTIN [Suspect]
     Active Substance: GABAPENTIN
     Indication: Product used for unknown indication
     Dosage: 12 GRAM, PER DAY
     Route: 065
  2. GABAPENTIN [Suspect]
     Active Substance: GABAPENTIN
     Dosage: 300 MILLIGRAM, 2-3 TIMES A DAY, CAPSULE
     Route: 065
  3. ACETAMINOPHEN\CODEINE PHOSPHATE [Suspect]
     Active Substance: ACETAMINOPHEN\CODEINE PHOSPHATE
     Indication: Product used for unknown indication
     Dosage: UNK, 2-4 TABLETS PER DAY
     Route: 065
  4. ACETAMINOPHEN\CODEINE PHOSPHATE [Suspect]
     Active Substance: ACETAMINOPHEN\CODEINE PHOSPHATE
     Dosage: UNK, 6-8  TABLETS PER DAY
     Route: 065
  5. ACETAMINOPHEN\CODEINE PHOSPHATE [Suspect]
     Active Substance: ACETAMINOPHEN\CODEINE PHOSPHATE
     Dosage: UNK, 10-15 TABLETS PER DAY
     Route: 065
  6. CODEINE [Concomitant]
     Active Substance: CODEINE
     Indication: Neck pain
     Dosage: UNK
     Route: 065

REACTIONS (26)
  - Pollakiuria [Unknown]
  - Polyuria [Unknown]
  - Feeling abnormal [Unknown]
  - Flank pain [Unknown]
  - Intentional product misuse [Unknown]
  - Nervousness [Unknown]
  - Palpitations [Unknown]
  - Irritability [Unknown]
  - Restlessness [Unknown]
  - Drug withdrawal syndrome [Unknown]
  - Ataxia [Unknown]
  - Dizziness [Unknown]
  - Somnolence [Unknown]
  - Confusional state [Unknown]
  - Coordination abnormal [Unknown]
  - Asthenia [Unknown]
  - Fatigue [Unknown]
  - Depression [Unknown]
  - Movement disorder [Unknown]
  - Back pain [Unknown]
  - Hyperhidrosis [Unknown]
  - Insomnia [Unknown]
  - Diarrhoea [Unknown]
  - Drug abuse [Unknown]
  - Drug dependence [Unknown]
  - Poisoning [Unknown]
